FAERS Safety Report 4531444-5 (Version None)
Quarter: 2004Q4

REPORT INFORMATION
  Report Type: 
  Country: None (occurrence: None)
  Receive Date: 20041216
  Receipt Date: 20041201
  Transmission Date: 20050328
  Serious: Yes (Death)
  Sender: FDA-Public Use
  Company Number: 21-732-2004-M0002

PATIENT
  Age: 85 Year
  Sex: Male
  Weight: 65.7716 kg

DRUGS (9)
  1. VANTAS [Suspect]
     Indication: PROSTATE CANCER
     Dosage: 50 MG, ONCE PER YEAR, IMPLANT 057
     Dates: start: 20041118, end: 20041129
  2. NORVASC [Concomitant]
  3. TOPROL-XL [Concomitant]
  4. GLYBURIDE [Concomitant]
  5. ENALAPRIL [Concomitant]
  6. FUROSEMIDE [Concomitant]
  7. ISOSORBIDE [Concomitant]
  8. NITRO PATCH [Concomitant]
  9. ASPIRIN [Concomitant]

REACTIONS (2)
  - CARDIOMYOPATHY [None]
  - REFUSAL OF TREATMENT BY PATIENT [None]
